FAERS Safety Report 9462712 (Version 1)
Quarter: 2013Q3

REPORT INFORMATION
  Report Type: Report from Study
  Country: DE (occurrence: DE)
  Receive Date: 20130816
  Receipt Date: 20130816
  Transmission Date: 20140515
  Serious: Yes (Death)
  Sender: FDA-Public Use
  Company Number: DE-BAYER-2013-098752

PATIENT
  Sex: Female

DRUGS (1)
  1. BETAFERON [Suspect]
     Dosage: UNK

REACTIONS (1)
  - Death [Fatal]
